FAERS Safety Report 16410743 (Version 1)
Quarter: 2019Q2

REPORT INFORMATION
  Report Type: Spontaneous
  Country: GR (occurrence: GR)
  Receive Date: 20190610
  Receipt Date: 20190610
  Transmission Date: 20190711
  Serious: Yes (Hospitalization)
  Sender: FDA-Public Use
  Company Number: GR-PFIZER INC-2019237984

PATIENT
  Age: 63 Year
  Sex: Female

DRUGS (1)
  1. ACCUPRON [Suspect]
     Active Substance: QUINAPRIL HYDROCHLORIDE
     Indication: BLOOD PRESSURE ABNORMAL
     Dosage: 20 MG, UNK
     Dates: start: 2011

REACTIONS (3)
  - Ischaemia [Unknown]
  - Vertigo [Unknown]
  - Stress [Unknown]

NARRATIVE: CASE EVENT DATE: 2011
